FAERS Safety Report 21187280 (Version 6)
Quarter: 2022Q4

REPORT INFORMATION
  Report Type: Report from Study
  Country: NL (occurrence: None)
  Receive Date: 20220808
  Receipt Date: 20221003
  Transmission Date: 20230113
  Serious: Yes (Hospitalization)
  Sender: FDA-Public Use
  Company Number: NL-Eisai Medical Research-EC-2022-120728

PATIENT
  Age: 52 Year
  Sex: Female
  Weight: 71.2 kg

DRUGS (14)
  1. LENVATINIB [Suspect]
     Active Substance: LENVATINIB
     Indication: Neoplasm
     Route: 048
     Dates: start: 20220603, end: 20220728
  2. LENVATINIB [Suspect]
     Active Substance: LENVATINIB
     Route: 048
     Dates: start: 20220812, end: 20220915
  3. PEMBROLIZUMAB [Suspect]
     Active Substance: PEMBROLIZUMAB
     Indication: Neoplasm
     Route: 041
     Dates: start: 20220603, end: 20220722
  4. PEMBROLIZUMAB [Suspect]
     Active Substance: PEMBROLIZUMAB
     Route: 041
     Dates: start: 20220902, end: 20220902
  5. BELZUTIFAN [Suspect]
     Active Substance: BELZUTIFAN
     Indication: Neoplasm
     Dosage: STARTING DOSE AT: 120 MG, FLUCTUATED DOSAGE
     Route: 048
     Dates: start: 20220603, end: 20220728
  6. BELZUTIFAN [Suspect]
     Active Substance: BELZUTIFAN
     Route: 048
     Dates: start: 20220812, end: 20220911
  7. MAGNESIUM [Concomitant]
     Active Substance: MAGNESIUM
     Dates: start: 20210611
  8. COSMETICS [Concomitant]
     Active Substance: COSMETICS
     Dates: start: 20220131
  9. CICLOPIROX [Concomitant]
     Active Substance: CICLOPIROX
     Dates: start: 20220517
  10. OXYCODONE [Concomitant]
     Active Substance: OXYCODONE
     Dates: start: 20220714
  11. OXYCONTIN [Concomitant]
     Active Substance: OXYCODONE HYDROCHLORIDE
     Dates: start: 20220714
  12. ACETAMINOPHEN [Concomitant]
     Active Substance: ACETAMINOPHEN
     Dates: start: 20220714
  13. POTASSIUM CHLORIDE [Concomitant]
     Active Substance: POTASSIUM CHLORIDE
     Dates: start: 20220715, end: 20220722
  14. THYRAX [LEVOTHYROXINE SODIUM] [Concomitant]
     Dates: start: 20220715

REACTIONS (1)
  - Pyrexia [Recovered/Resolved]

NARRATIVE: CASE EVENT DATE: 20220726
